FAERS Safety Report 8616361-3 (Version None)
Quarter: 2012Q3

REPORT INFORMATION
  Report Type: 
  Country: None (occurrence: None)
  Receive Date: 20120823
  Receipt Date: 20120522
  Transmission Date: 20120928
  Serious: No
  Sender: FDA-Public Use
  Company Number: US-MYLANLABS-2012S1010684

PATIENT
  Age: 58 Year
  Sex: Male

DRUGS (1)
  1. BUDESONIDE [Suspect]
     Indication: ASTHMA
     Route: 048
     Dates: start: 20120201

REACTIONS (2)
  - ASTHMA [None]
  - DRUG INEFFECTIVE FOR UNAPPROVED INDICATION [None]
